FAERS Safety Report 13129007 (Version 1)
Quarter: 2017Q1

REPORT INFORMATION
  Report Type: Spontaneous
  Country: US (occurrence: US)
  Receive Date: 20170117
  Receipt Date: 20170117
  Transmission Date: 20170428
  Serious: Yes (Death)
  Sender: FDA-Public Use
  Company Number: None

PATIENT
  Age: 90 Year
  Sex: Female

DRUGS (1)
  1. PROCRIT [Suspect]
     Active Substance: ERYTHROPOIETIN
     Indication: ANAEMIA
     Dosage: 20,000 UNITS EVERY 2 WEEKS SUBCUTANEOUS INJ
     Route: 058
     Dates: start: 20160609, end: 20161101

REACTIONS (1)
  - Death [None]

NARRATIVE: CASE EVENT DATE: 20170117
